FAERS Safety Report 22527515 (Version 1)
Quarter: 2023Q2

REPORT INFORMATION
  Report Type: Spontaneous
  Country: US (occurrence: US)
  Receive Date: 20230606
  Receipt Date: 20230606
  Transmission Date: 20230721
  Serious: No
  Sender: FDA-Public Use
  Company Number: US-BRAINTREE LABORATORIES, INC.-2023BTE00222

PATIENT
  Age: 72 Year
  Sex: Female

DRUGS (5)
  1. SUTAB [Suspect]
     Active Substance: MAGNESIUM SULFATE\POTASSIUM CHLORIDE\SODIUM SULFATE
     Indication: Colonoscopy
     Dosage: 1 X 12 TABLETS, 1X
     Route: 048
     Dates: start: 20230329, end: 20230329
  2. AMLODIPINE [Concomitant]
     Active Substance: AMLODIPINE BESYLATE
     Dosage: 5 MG, 1X/DAY (DID NOT TAKE 29-MAR-2023 AND 30-MAR-2023)
     Route: 048
  3. CRESTOR [Concomitant]
     Active Substance: ROSUVASTATIN CALCIUM
     Dosage: 10 MG, 1X/DAY (DID NOT TAKE 29-MAR-2023 AND 30-MAR-2023)
     Route: 048
  4. LEVOTHYROXINE [Concomitant]
     Active Substance: LEVOTHYROXINE
     Dosage: 75 MG, 1X/DAY (DID NOT TAKE 29-MAR-2023 AND 30-MAR-2023)
     Route: 048
  5. GABAPENTIN [Concomitant]
     Active Substance: GABAPENTIN
     Dosage: 150 MG, 2X/DAY OCCASIONALLY (DID NOT TAKE 29-MAR-2023 AND 30-MAR-2023)
     Route: 048

REACTIONS (4)
  - Abdominal pain [Not Recovered/Not Resolved]
  - Abdominal discomfort [Not Recovered/Not Resolved]
  - Vomiting [Recovered/Resolved]
  - Abdominal distension [Not Recovered/Not Resolved]

NARRATIVE: CASE EVENT DATE: 20230329
